FAERS Safety Report 18275899 (Version 1)
Quarter: 2020Q3

REPORT INFORMATION
  Report Type: Spontaneous
  Country: DE (occurrence: DE)
  Receive Date: 20200916
  Receipt Date: 20200916
  Transmission Date: 20201103
  Serious: Yes (Other)
  Sender: FDA-Public Use
  Company Number: DE-ROCHE-2677644

PATIENT
  Sex: Female

DRUGS (5)
  1. BRINZOLAMIDE [Concomitant]
     Active Substance: BRINZOLAMIDE
     Indication: PRODUCT USED FOR UNKNOWN INDICATION
     Route: 047
  2. BEOVU [Suspect]
     Active Substance: BROLUCIZUMAB-DBLL
     Dosage: UNK (RESTARTED)
     Route: 031
     Dates: start: 20200803
  3. LUCENTIS [Suspect]
     Active Substance: RANIBIZUMAB
     Indication: PRODUCT USED FOR UNKNOWN INDICATION
     Route: 065
  4. BEOVU [Suspect]
     Active Substance: BROLUCIZUMAB-DBLL
     Indication: AGE-RELATED MACULAR DEGENERATION
     Route: 031
     Dates: start: 20200526
  5. BEOVU [Suspect]
     Active Substance: BROLUCIZUMAB-DBLL
     Route: 031
     Dates: start: 20200623

REACTIONS (4)
  - Vitreal cells [Unknown]
  - Blindness [Recovering/Resolving]
  - Vitreous opacities [Not Recovered/Not Resolved]
  - Anterior chamber flare [Not Recovered/Not Resolved]

NARRATIVE: CASE EVENT DATE: 202008
